FAERS Safety Report 4352260-3 (Version None)
Quarter: 2004Q2

REPORT INFORMATION
  Report Type: 
  Country: None (occurrence: None)
  Receive Date: 20040427
  Receipt Date: 20030321
  Transmission Date: 20050107
  Serious: Yes (Other)
  Sender: FDA-Public Use
  Company Number: WAES0303USA02192

PATIENT
  Age: 42 Year
  Sex: Female

DRUGS (6)
  1. SINGULAIR [Suspect]
     Indication: ASTHMA
     Dosage: 10 MG/DAILY/PO
     Route: 048
     Dates: start: 20030313, end: 20030314
  2. SINGULAIR [Suspect]
     Indication: ASTHMA
     Dosage: 10 MG/DAILY/PO
     Route: 048
     Dates: start: 20030316, end: 20030317
  3. ADVAIR DISKUS 100/50 [Concomitant]
  4. ALLEGRA [Concomitant]
  5. LEXAPRO [Concomitant]
  6. PREMARIN [Concomitant]

REACTIONS (2)
  - CONVULSION [None]
  - HYPERSENSITIVITY [None]
